FAERS Safety Report 5321652-8 (Version None)
Quarter: 2007Q1

REPORT INFORMATION
  Report Type: 
  Country: None (occurrence: None)
  Receive Date: 20070220
  Receipt Date: 20061205
  Transmission Date: 20070707
  Serious: No
  Sender: FDA-Public Use
  Company Number: TPA2006A02189

PATIENT
  Age: 62 Year
  Sex: Female
  Weight: 63.05 kg

DRUGS (4)
  1. ROZEREM [Suspect]
     Indication: INSOMNIA
     Dosage: 8 MG, HS, PER ORAL
     Route: 048
     Dates: start: 20061115, end: 20061120
  2. LEXAPRO [Concomitant]
  3. THYROID TAB [Concomitant]
  4. BIOIDENTICAL HORMONES (OTHER HORMONES) [Concomitant]

REACTIONS (4)
  - DIZZINESS [None]
  - FALL [None]
  - INITIAL INSOMNIA [None]
  - MUSCLE INJURY [None]
